FAERS Safety Report 7020451-9 (Version None)
Quarter: 2010Q3

REPORT INFORMATION
  Report Type: 
  Country: None (occurrence: None)
  Receive Date: 20100929
  Receipt Date: 20100914
  Transmission Date: 20110219
  Serious: Yes (Other)
  Sender: FDA-Public Use
  Company Number: JP-ROCHE-684301

PATIENT
  Sex: Male

DRUGS (4)
  1. AVASTIN [Suspect]
     Indication: COLON CANCER
     Route: 041
     Dates: start: 20091027, end: 20100107
  2. XELODA [Suspect]
     Indication: COLON CANCER
     Route: 048
  3. XELODA [Suspect]
     Dosage: DOSE REPORTED: 1500/1200 MG
     Route: 048
     Dates: start: 20091027, end: 20100107
  4. ELPLAT [Concomitant]
     Dosage: DOSAGE IS UNCERTAIN.
     Route: 041

REACTIONS (2)
  - ATRIAL FIBRILLATION [None]
  - EMBOLIC CEREBRAL INFARCTION [None]
